FAERS Safety Report 16336219 (Version 2)
Quarter: 2019Q2

REPORT INFORMATION
  Report Type: Spontaneous
  Country: US (occurrence: US)
  Receive Date: 20190521
  Receipt Date: 20190621
  Transmission Date: 20190711
  Serious: No
  Sender: FDA-Public Use
  Company Number: US-BIOGEN-2019BI00739372

PATIENT
  Sex: Female

DRUGS (1)
  1. TYSABRI [Suspect]
     Active Substance: NATALIZUMAB
     Indication: MULTIPLE SCLEROSIS
     Route: 042
     Dates: start: 20180420

REACTIONS (7)
  - Pruritus [Unknown]
  - Malaise [Unknown]
  - Dizziness [Unknown]
  - Oral candidiasis [Unknown]
  - Ocular discomfort [Unknown]
  - Headache [Unknown]
  - Tremor [Unknown]
